FAERS Safety Report 12205879 (Version 1)
Quarter: 2016Q1

REPORT INFORMATION
  Report Type: Not Available
  Country: ES (occurrence: ES)
  Receive Date: 20160323
  Receipt Date: 20160323
  Transmission Date: 20160526
  Serious: Yes (Hospitalization)
  Sender: FDA-Public Use
  Company Number: ES-ANIPHARMA-2016-ES-000003

PATIENT
  Age: 6 Year
  Sex: Female

DRUGS (1)
  1. PHENYTOIN SODIUM (NON-SPECIFIC) [Suspect]
     Active Substance: PHENYTOIN SODIUM

REACTIONS (1)
  - Drug reaction with eosinophilia and systemic symptoms [Unknown]
